FAERS Safety Report 10510741 (Version 1)
Quarter: 2014Q4

REPORT INFORMATION
  Report Type: Other
  Country: DE (occurrence: DE)
  Receive Date: 20141010
  Receipt Date: 20141010
  Transmission Date: 20150528
  Serious: No
  Sender: FDA-Public Use
  Company Number: DE-LUPIN PHARMACEUTICALS INC.-E2B_00002497

PATIENT
  Age: 73 Year
  Sex: Female
  Weight: 85 kg

DRUGS (2)
  1. SIMVASTATIN. [Suspect]
     Active Substance: SIMVASTATIN
     Indication: HYPERCHOLESTEROLAEMIA
     Route: 048
  2. FLUVASTATIN [Suspect]
     Active Substance: FLUVASTATIN SODIUM
     Indication: HYPERCHOLESTEROLAEMIA
     Route: 048

REACTIONS (2)
  - Paraesthesia [Unknown]
  - Gastritis [Unknown]

NARRATIVE: CASE EVENT DATE: 201402
